FAERS Safety Report 10176394 (Version 1)
Quarter: 2014Q2

REPORT INFORMATION
  Report Type: Spontaneous
  Country: US (occurrence: US)
  Receive Date: 20140516
  Receipt Date: 20140516
  Transmission Date: 20141212
  Serious: Yes (Death, Other)
  Sender: FDA-Public Use
  Company Number: CHPA2014US006533

PATIENT
  Age: 59 Year
  Sex: Male

DRUGS (1)
  1. PRIVATE LABEL STEP 1 21MG ACCT UNKNOWN [Suspect]
     Indication: SMOKING CESSATION THERAPY
     Dosage: 1 DF, QD
     Route: 062

REACTIONS (2)
  - Death [Fatal]
  - Mass [Unknown]
